FAERS Safety Report 5648697-2 (Version None)
Quarter: 2008Q1

REPORT INFORMATION
  Report Type: 
  Country: None (occurrence: None)
  Receive Date: 20080304
  Receipt Date: 20080229
  Transmission Date: 20080703
  Serious: Yes (Life-Threatening)
  Sender: FDA-Public Use
  Company Number: B0510843A

PATIENT
  Age: 73 Year
  Sex: Female

DRUGS (6)
  1. AVANDIA [Suspect]
     Indication: DIABETES MELLITUS
     Dosage: 8MG PER DAY
     Route: 048
     Dates: start: 20030407, end: 20071016
  2. ASPIRIN [Concomitant]
     Dosage: 100MBQ PER DAY
     Route: 048
  3. LORAZEPAM [Concomitant]
     Dosage: 1MG PER DAY
     Route: 048
  4. SINTROM [Concomitant]
     Dosage: 4MG PER DAY
     Route: 048
  5. FUROSEMIDE [Concomitant]
     Dosage: 40MG TWICE PER DAY
     Route: 048
  6. ACETAMINOPHEN [Concomitant]
     Dosage: 650MG PER DAY
     Route: 048

REACTIONS (1)
  - ACUTE MYOCARDIAL INFARCTION [None]
